FAERS Safety Report 6296118-1 (Version None)
Quarter: 2009Q3

REPORT INFORMATION
  Report Type: 
  Country: None (occurrence: None)
  Receive Date: 20090731
  Receipt Date: 20090720
  Transmission Date: 20100115
  Serious: Yes (Hospitalization)
  Sender: FDA-Public Use
  Company Number: 1000007682

PATIENT
  Age: 74 Year
  Sex: Male
  Weight: 123 kg

DRUGS (11)
  1. ESCITALOPRAM OXALATE [Suspect]
     Indication: DEPRESSION
     Dosage: 10 MG (10 MG, 1  IN 1 D),ORAL
     Route: 048
     Dates: start: 20081101, end: 20090325
  2. DIPIPERON (TABLETS) [Suspect]
     Indication: RESTLESSNESS
     Dosage: 3 DOSAGE FORMS, 1 IN 1 D), ORAL
     Route: 048
     Dates: start: 20090201, end: 20090325
  3. TIAPRIOE (100 MILLIGRAM, TABLETS) [Suspect]
     Indication: MOVEMENT DISORDER
     Dosage: 300 MG (100 MG,3 IN 1 D),ORAL
     Route: 048
     Dates: start: 20090201, end: 20090325
  4. RISPERDAL [Suspect]
     Dosage: 1 MG (0.5 MG,2 IN 1 D)
     Dates: end: 20090325
  5. CLEXANE (0.8 MILLIGRAM, INJECTION) [Concomitant]
  6. CONCOR (2.5 MILLIGRAM, TABLETS) [Concomitant]
  7. FERRO SANOL (40 MILLIGRAM, TABLETS) [Concomitant]
  8. FOLSAN (0.4 MILLIGRAM, TABLETS) [Concomitant]
  9. LISINOPRIL (5 MILLIGRAM, TABLETS) [Concomitant]
  10. METFORMIN (500 MILLIGRAM, TABLETS) [Concomitant]
  11. VITAMIN B (1 DOSAGE FORMS, TABLETS) [Concomitant]

REACTIONS (11)
  - ABDOMINAL PAIN UPPER [None]
  - ASTHENIA [None]
  - BLOOD CREATINE PHOSPHOKINASE INCREASED [None]
  - DEHYDRATION [None]
  - DISTURBANCE IN ATTENTION [None]
  - HAEMOGLOBIN DECREASED [None]
  - MOBILITY DECREASED [None]
  - MYOGLOBIN BLOOD INCREASED [None]
  - PERSONALITY CHANGE [None]
  - URINARY TRACT INFECTION [None]
  - WHITE BLOOD CELL COUNT INCREASED [None]
